FAERS Safety Report 4823818-X (Version None)
Quarter: 2005Q4

REPORT INFORMATION
  Report Type: 
  Country: None (occurrence: None)
  Receive Date: 20051107
  Receipt Date: 20051019
  Transmission Date: 20060501
  Serious: Yes (Other)
  Sender: FDA-Public Use
  Company Number: TRP_0635_2005

PATIENT
  Age: 44 Year
  Sex: Female
  Weight: 46.2669 kg

DRUGS (2)
  1. RIBASPHERE [Suspect]
     Indication: HEPATITIS C
     Dosage: DF PO
     Route: 048
     Dates: start: 20050912
  2. PEG-INTRON [Suspect]
     Indication: HEPATITIS C
     Dosage: DF SC
     Route: 058
     Dates: start: 20050912

REACTIONS (3)
  - DISTURBANCE IN ATTENTION [None]
  - HALLUCINATION [None]
  - TINNITUS [None]
